FAERS Safety Report 15196467 (Version 2)
Quarter: 2018Q3

REPORT INFORMATION
  Report Type: Spontaneous
  Country: RU (occurrence: RU)
  Receive Date: 20180725
  Receipt Date: 20180725
  Transmission Date: 20181010
  Serious: Yes (Other)
  Sender: FDA-Public Use
  Company Number: RU-BAYER-2018-138315

PATIENT
  Sex: Female

DRUGS (1)
  1. ULTRAVIST [Suspect]
     Active Substance: IOPROMIDE
     Indication: BREAST DISORDER
     Dosage: UNK, ONCE
     Dates: start: 20180719

REACTIONS (5)
  - Anaphylactic shock [None]
  - Respiratory tract oedema [None]
  - Bronchospasm [None]
  - Product quality issue [None]
  - Suspected counterfeit product [None]
